FAERS Safety Report 15786083 (Version 1)
Quarter: 2018Q4

REPORT INFORMATION
  Report Type: Spontaneous
  Country: US (occurrence: US)
  Receive Date: 20181212
  Receipt Date: 20181212
  Transmission Date: 20190205
  Serious: No
  Sender: FDA-Public Use
  Company Number: None

PATIENT
  Age: 38 Year
  Sex: Male

DRUGS (1)
  1. OCTREOTIDE INJ 1000MCG [Suspect]
     Active Substance: OCTREOTIDE
     Indication: DIARRHOEA
     Route: 058
     Dates: start: 201812

REACTIONS (1)
  - Off label use [None]

NARRATIVE: CASE EVENT DATE: 20181210
